FAERS Safety Report 6392029-1 (Version None)
Quarter: 2009Q4

REPORT INFORMATION
  Report Type: 
  Country: None (occurrence: None)
  Receive Date: 20091007
  Receipt Date: 20090929
  Transmission Date: 20100525
  Serious: Yes (Other)
  Sender: FDA-Public Use
  Company Number: CH-ROCHE-659137

PATIENT
  Sex: Female
  Weight: 52 kg

DRUGS (4)
  1. BONIVA [Suspect]
     Indication: OSTEOPOROSIS
     Route: 048
     Dates: start: 20051101
  2. BONIVA [Suspect]
     Dosage: FORM: TABLET, ONE TABLET EACH ON 01 MAY 2009 AND 01 JUNE 2009.
     Route: 048
     Dates: start: 20090501
  3. BONIVA [Suspect]
     Route: 042
     Dates: start: 20090201, end: 20090201
  4. BONIVA [Suspect]
     Route: 042
     Dates: start: 20090701, end: 20090701

REACTIONS (2)
  - JOINT SWELLING [None]
  - MYALGIA [None]
